FAERS Safety Report 4872505-0 (Version None)
Quarter: 2005Q4

REPORT INFORMATION
  Report Type: 
  Country: None (occurrence: None)
  Receive Date: 20051230
  Receipt Date: 20051230
  Transmission Date: 20060501
  Serious: Yes (Other)
  Sender: FDA-Public Use
  Company Number: None

PATIENT
  Sex: Female
  Weight: 68 kg

DRUGS (3)
  1. TEMOZOLOMIDE [Suspect]
     Indication: GLIOBLASTOMA MULTIFORME
     Dosage: SEE IMAGE
     Route: 048
     Dates: start: 20051123, end: 20051127
  2. IRINOTECAN HCL [Suspect]
     Dosage: SEE IMAGE
     Dates: start: 20051123, end: 20051207
  3. RADIATION THERAPY [Suspect]
     Dosage: SEE IMAGE
     Dates: start: 20051123

REACTIONS (9)
  - ABASIA [None]
  - ACTIVITIES OF DAILY LIVING IMPAIRED [None]
  - ARTHRALGIA [None]
  - ASTHENIA [None]
  - GENERAL PHYSICAL HEALTH DETERIORATION [None]
  - HEMIPARESIS [None]
  - NEOPLASM [None]
  - PAIN [None]
  - WHEELCHAIR USER [None]
